FAERS Safety Report 5522587-8 (Version None)
Quarter: 2007Q4

REPORT INFORMATION
  Report Type: 
  Country: None (occurrence: None)
  Receive Date: 20071120
  Receipt Date: 20071115
  Transmission Date: 20080405
  Serious: Yes (Death, Hospitalization)
  Sender: FDA-Public Use
  Company Number: JP-ABBOTT-07P-087-0424784-00

PATIENT
  Age: 69 Year
  Sex: Male

DRUGS (6)
  1. CLARITH TABLETS [Suspect]
     Indication: INFECTION PROPHYLAXIS
     Route: 048
     Dates: start: 20050603, end: 20050604
  2. LOXOPROFEN [Suspect]
     Indication: PAIN
     Route: 048
     Dates: start: 20050603, end: 20050603
  3. LOXOPROFEN [Suspect]
     Route: 048
     Dates: start: 20050607, end: 20050608
  4. LOXOPROFEN [Suspect]
     Route: 048
     Dates: start: 20050610, end: 20050610
  5. CLINDAMYCIN HCL [Concomitant]
     Indication: ANTIBIOTIC PROPHYLAXIS
     Route: 048
     Dates: start: 20050607, end: 20050609
  6. LIDOCAINE [Concomitant]
     Indication: ANAESTHESIA
     Dates: start: 20050603

REACTIONS (2)
  - ANAEMIA HAEMOLYTIC AUTOIMMUNE [None]
  - THROMBOTIC THROMBOCYTOPENIC PURPURA [None]
